FAERS Safety Report 23602006 (Version 5)
Quarter: 2025Q1

REPORT INFORMATION
  Report Type: Spontaneous
  Country: US (occurrence: US)
  Receive Date: 20240306
  Receipt Date: 20250222
  Transmission Date: 20250408
  Serious: No
  Sender: SANOFI AVENTIS
  Company Number: US-SA-SAC20240304000556

PATIENT
  Age: 57 Year
  Sex: Male
  Weight: 78.879 kg

DRUGS (10)
  1. DUPIXENT [Suspect]
     Active Substance: DUPILUMAB
     Indication: Dermatitis atopic
     Dosage: 300 MG, QOW
     Route: 058
     Dates: start: 20231129
  2. DUPIXENT [Suspect]
     Active Substance: DUPILUMAB
     Indication: Product used for unknown indication
  3. DOXYCYCLINE HYCLATE [Concomitant]
     Active Substance: DOXYCYCLINE HYCLATE
  4. QUVIVIQ [Concomitant]
     Active Substance: DARIDOREXANT
  5. DOXEPIN [Concomitant]
     Active Substance: DOXEPIN
  6. REPATHA [Concomitant]
     Active Substance: EVOLOCUMAB
  7. CANDESARTAN CILEXETIL [Concomitant]
     Active Substance: CANDESARTAN CILEXETIL
  8. ICOSAPENT ETHYL [Concomitant]
     Active Substance: ICOSAPENT ETHYL
  9. EZETIMIBE [Concomitant]
     Active Substance: EZETIMIBE
  10. SIMPONI [Concomitant]
     Active Substance: GOLIMUMAB

REACTIONS (2)
  - Injection site pain [Unknown]
  - Bone lesion excision [Unknown]

NARRATIVE: CASE EVENT DATE: 20240213
